FAERS Safety Report 21038686 (Version 2)
Quarter: 2022Q3

REPORT INFORMATION
  Report Type: Report from Study
  Country: US (occurrence: US)
  Receive Date: 20220704
  Receipt Date: 20220909
  Transmission Date: 20221026
  Serious: No
  Sender: FDA-Public Use
  Company Number: US-BIOVITRUM-2022US03240

PATIENT
  Age: 25 Year
  Sex: Female

DRUGS (2)
  1. KINERET [Suspect]
     Active Substance: ANAKINRA
     Indication: Still^s disease
     Dates: start: 20190402
  2. KINERET [Suspect]
     Active Substance: ANAKINRA
     Dates: start: 20200515

REACTIONS (4)
  - Skin reaction [Unknown]
  - Rash [Unknown]
  - Product dose omission issue [Unknown]
  - Off label use [Recovered/Resolved]

NARRATIVE: CASE EVENT DATE: 20190402
